FAERS Safety Report 22644918 (Version 1)
Quarter: 2023Q2

REPORT INFORMATION
  Report Type: Spontaneous
  Country: US (occurrence: None)
  Receive Date: 20230624
  Receipt Date: 20230624
  Transmission Date: 20230722
  Serious: Yes (Other)
  Sender: FDA-Public Use
  Company Number: None

PATIENT
  Age: 32 Year
  Sex: Female
  Weight: 90.45 kg

DRUGS (1)
  1. OMEPRAZOLE [Suspect]
     Active Substance: OMEPRAZOLE
     Indication: Gastrooesophageal reflux disease
     Dosage: OTHER QUANTITY : 1 CAPSULE(S);?
     Route: 048
     Dates: start: 20230621, end: 20230623

REACTIONS (18)
  - Hypersensitivity [None]
  - Pruritus [None]
  - Chest discomfort [None]
  - Throat tightness [None]
  - Dysphagia [None]
  - Speech disorder [None]
  - Dysphonia [None]
  - Swollen tongue [None]
  - Electrolyte imbalance [None]
  - Myalgia [None]
  - Muscle spasms [None]
  - Asthenia [None]
  - Abdominal discomfort [None]
  - Renal disorder [None]
  - Haemorrhage [None]
  - Liver disorder [None]
  - Fatigue [None]
  - Abdominal pain upper [None]

NARRATIVE: CASE EVENT DATE: 20230622
